FAERS Safety Report 10428114 (Version 1)
Quarter: 2014Q3

REPORT INFORMATION
  Report Type: Spontaneous
  Country: AU (occurrence: AU)
  Receive Date: 20140903
  Receipt Date: 20140903
  Transmission Date: 20150326
  Serious: Yes (Other)
  Sender: FDA-Public Use
  Company Number: PHHY2014AU104872

PATIENT
  Age: 6 Year
  Sex: Male

DRUGS (1)
  1. RITALIN [Suspect]
     Active Substance: METHYLPHENIDATE HYDROCHLORIDE
     Indication: ATTENTION DEFICIT/HYPERACTIVITY DISORDER
     Dosage: UNK (IN THE MORNING AND AFTERNOON) FOR 3 WEEKS

REACTIONS (7)
  - Rhinorrhoea [Unknown]
  - Influenza [Unknown]
  - Confusional state [Unknown]
  - Paranoia [Unknown]
  - Headache [Recovered/Resolved]
  - Pyrexia [Unknown]
  - Insomnia [Unknown]
